FAERS Safety Report 8413715-5 (Version None)
Quarter: 2012Q2

REPORT INFORMATION
  Report Type: 
  Country: None (occurrence: None)
  Receive Date: 20120605
  Receipt Date: 20120523
  Transmission Date: 20120825
  Serious: Yes (Death)
  Sender: FDA-Public Use
  Company Number: BE-CELGENEUS-013-21880-12031529

PATIENT
  Sex: Male

DRUGS (14)
  1. SIMVASTATIN [Concomitant]
     Route: 065
  2. MODURETIC 5-50 [Concomitant]
     Route: 065
  3. DEXAMETHASONE [Concomitant]
     Dosage: 1.4286 MILLIGRAM
     Route: 065
  4. TRAMADOL HCL [Concomitant]
     Route: 065
  5. ASPIRIN [Concomitant]
     Dosage: 80 MILLIGRAM
     Route: 065
  6. LOSARTAN POTASSIUM [Concomitant]
     Dosage: 50/12.5
     Route: 065
  7. OXYBUTYNIN [Concomitant]
     Route: 065
  8. PROLOPA [Concomitant]
     Route: 065
  9. REVLIMID [Suspect]
     Indication: MULTIPLE MYELOMA
     Route: 048
     Dates: start: 20110124, end: 20110624
  10. RANITIDINE [Concomitant]
     Dosage: 300 MILLIGRAM
     Route: 065
  11. ZOVIRAX [Concomitant]
     Dosage: 800 MILLIGRAM
     Route: 065
  12. TAMSULOSIN HCL [Concomitant]
     Dosage: .4 MILLIGRAM
     Route: 065
  13. BISOPROLOL FUMARATE [Concomitant]
     Route: 065
  14. ALLOPURINOL [Concomitant]
     Dosage: 300 MILLIGRAM
     Route: 065

REACTIONS (1)
  - MULTIPLE MYELOMA [None]
